FAERS Safety Report 9416997 (Version 1)
Quarter: 2013Q3

REPORT INFORMATION
  Report Type: Spontaneous
  Country: DK (occurrence: FR)
  Receive Date: 20130724
  Receipt Date: 20130724
  Transmission Date: 20140515
  Serious: Yes (Life-Threatening)
  Sender: FDA-Public Use
  Company Number: FR-FRI-1000046975

PATIENT
  Age: 88 Year
  Sex: Male

DRUGS (11)
  1. ESCITALOPRAM [Suspect]
     Dosage: 1 DF
     Route: 048
     Dates: end: 20130607
  2. FLAGYL [Suspect]
     Indication: PSEUDOMEMBRANOUS COLITIS
     Dosage: 1000 MG
     Route: 048
     Dates: start: 20130530, end: 20130607
  3. ZYVOXID [Suspect]
     Indication: URINARY TRACT INFECTION
     Dosage: 1200 MG
     Route: 042
     Dates: start: 20130530, end: 20130611
  4. LANTUS [Concomitant]
     Dosage: 10 DF IN THE MORNING
  5. PREVISCAN [Concomitant]
     Dosage: 1 DF
  6. PRAVASTATINE [Concomitant]
     Dosage: 20 MG
  7. CARDENSIEL [Concomitant]
     Dosage: 2.5 MG
  8. LASILIX [Concomitant]
  9. INEXIUM [Concomitant]
     Dosage: 1 DF
  10. LEVOTHYROX [Concomitant]
     Dosage: 1 DF
  11. ECONAZOLE [Concomitant]

REACTIONS (3)
  - Clonus [Recovered/Resolved]
  - Asterixis [Recovered/Resolved]
  - Toxic encephalopathy [Recovered/Resolved]
